FAERS Safety Report 4687149-3 (Version None)
Quarter: 2005Q2

REPORT INFORMATION
  Report Type: 
  Country: None (occurrence: None)
  Receive Date: 20050608
  Receipt Date: 20050525
  Transmission Date: 20051028
  Serious: Yes (Other)
  Sender: FDA-Public Use
  Company Number: US-GDP-0511871

PATIENT
  Age: 55 Year
  Sex: Male
  Weight: 86.1834 kg

DRUGS (4)
  1. CLOBEX [Suspect]
     Indication: PRURITUS
     Dosage: 1 APP ONCE TP
     Route: 061
     Dates: start: 20050414, end: 20050414
  2. CLOBEX [Suspect]
     Indication: SEBORRHOEIC DERMATITIS
     Dosage: 1 APP ONCE TP
     Route: 061
     Dates: start: 20050414, end: 20050414
  3. LIPITOR [Concomitant]
  4. PLAVIX [Concomitant]

REACTIONS (6)
  - ACCIDENTAL EXPOSURE [None]
  - AGEUSIA [None]
  - ANOSMIA [None]
  - DYSGEUSIA [None]
  - INCORRECT ROUTE OF DRUG ADMINISTRATION [None]
  - SEBORRHOEIC DERMATITIS [None]
